FAERS Safety Report 16732343 (Version 1)
Quarter: 2019Q3

REPORT INFORMATION
  Report Type: Spontaneous
  Country: BR (occurrence: BR)
  Receive Date: 20190822
  Receipt Date: 20190822
  Transmission Date: 20191005
  Serious: Yes (Other)
  Sender: FDA-Public Use
  Company Number: BR-BAXTER-2019BAX016123

PATIENT
  Age: 57 Year
  Sex: Female
  Weight: 47.4 kg

DRUGS (16)
  1. GENUXAL [Suspect]
     Active Substance: CYCLOPHOSPHAMIDE
     Dosage: FOURTH CYCLE OF AC PROTOCOL, ENDOXAN + SODIUM CHLORIDE
     Route: 065
     Dates: start: 20190607, end: 20190607
  2. DEXAMETHASONE. [Concomitant]
     Active Substance: DEXAMETHASONE
     Indication: PREMEDICATION
     Route: 065
  3. SODIUM CHLORIDE. [Suspect]
     Active Substance: SODIUM CHLORIDE
     Dosage: FOURTH CYCLE, ENDOXAN + SODIUM CHLORIDE
     Route: 065
     Dates: start: 20190607, end: 20190607
  4. BAXTER GLICOSE 5% - 500 ML [Suspect]
     Active Substance: DEXTROSE
     Dosage: FOURTH CYCLE, FAULDOXO + GLUCOSE
     Route: 065
     Dates: start: 20190607, end: 20190607
  5. BAXTER GLICOSE 5% - 500 ML [Suspect]
     Active Substance: DEXTROSE
     Indication: MEDICATION DILUTION
     Dosage: 1 TO 3 CYCLES, FAULDOXO + GLUCOSE
     Route: 065
     Dates: start: 20190308
  6. APRESOLIN [Concomitant]
     Active Substance: HYDRALAZINE HYDROCHLORIDE
     Indication: PRODUCT USED FOR UNKNOWN INDICATION
     Route: 065
  7. MONOCORDIL [Concomitant]
     Active Substance: ISOSORBIDE MONONITRATE
     Indication: PRODUCT USED FOR UNKNOWN INDICATION
     Route: 065
  8. RIVOTRIL [Concomitant]
     Active Substance: CLONAZEPAM
     Indication: PRODUCT USED FOR UNKNOWN INDICATION
     Route: 065
  9. ACETYLSALICYLIC ACID [Concomitant]
     Active Substance: ASPIRIN
     Indication: PRODUCT USED FOR UNKNOWN INDICATION
     Route: 065
  10. GENUXAL [Suspect]
     Active Substance: CYCLOPHOSPHAMIDE
     Indication: BREAST CANCER
     Dosage: 1 TO 3 CYCLES OF AC PROTOCOL, ENDOXAN + SODIUM CHLORIDE
     Route: 065
     Dates: start: 20190308
  11. SODIUM CHLORIDE. [Suspect]
     Active Substance: SODIUM CHLORIDE
     Indication: MEDICATION DILUTION
     Dosage: 1 TO 3 CYCLES, ENDOXAN + SODIUM CHLORIDE
     Route: 065
     Dates: start: 20190308
  12. FAULDOXO [Suspect]
     Active Substance: DOXORUBICIN HYDROCHLORIDE
     Indication: BREAST CANCER
     Dosage: 1 TO 3 CYCLES OF AC PROTOCOL, FAULDOXO + GLUCOSE
     Route: 065
     Dates: start: 20190308
  13. FAULDOXO [Suspect]
     Active Substance: DOXORUBICIN HYDROCHLORIDE
     Dosage: FOURTH CYCLE OF AC PROTOCOL
     Route: 065
     Dates: start: 20190607, end: 20190607
  14. VITAMIN B COMPLEX [Concomitant]
     Active Substance: CYANOCOBALAMIN\DEXPANTHENOL\NIACINAMIDE\PYRIDOXINE HYDROCHLORIDE\RIBOFLAVIN 5^-PHOSPHATE SODIUM\THIAMINE HYDROCHLORIDE\VITAMIN B COMPLEX
     Indication: PRODUCT USED FOR UNKNOWN INDICATION
     Route: 065
  15. FOSAPREPITANT [Concomitant]
     Active Substance: FOSAPREPITANT
     Indication: PREMEDICATION
     Route: 065
  16. INSULIN [Concomitant]
     Active Substance: INSULIN NOS
     Indication: PRODUCT USED FOR UNKNOWN INDICATION
     Route: 065

REACTIONS (1)
  - Neutropenia [Recovered/Resolved]

NARRATIVE: CASE EVENT DATE: 20190628
